FAERS Safety Report 9822932 (Version 2)
Quarter: 2014Q1

REPORT INFORMATION
  Report Type: Spontaneous
  Country: US (occurrence: US)
  Receive Date: 20140116
  Receipt Date: 20140116
  Transmission Date: 20141002
  Serious: No
  Sender: FDA-Public Use
  Company Number: US-GILEAD-2010-0033072

PATIENT
  Age: 62 Year
  Sex: Female

DRUGS (11)
  1. LETAIRIS [Suspect]
     Indication: PULMONARY ARTERIAL HYPERTENSION
     Route: 048
     Dates: start: 20101011
  2. LETAIRIS [Suspect]
     Route: 048
     Dates: start: 20101103
  3. ADCIRCA [Concomitant]
  4. VASOTEC [Concomitant]
  5. DIGOXIN [Concomitant]
  6. BETAPACE [Concomitant]
  7. LASIX [Concomitant]
  8. PREDNISONE [Concomitant]
  9. PLAQUENIL [Concomitant]
  10. IMURAN [Concomitant]
  11. LEXAPRO [Concomitant]

REACTIONS (1)
  - Hypotension [Recovered/Resolved]
